FAERS Safety Report 10682112 (Version 2)
Quarter: 2015Q1

REPORT INFORMATION
  Report Type: Spontaneous
  Country: DE (occurrence: None)
  Receive Date: 20141224
  Receipt Date: 20150127
  Transmission Date: 20150720
  Serious: Yes (Death, Life-Threatening)
  Sender: FDA-Public Use
  Company Number: FK201406402

PATIENT
  Age: 46 Year
  Sex: Female

DRUGS (1)
  1. PROPOFOL 1% MCT FRESENIUS (PROPOFOL) (PROPOFOL) [Suspect]
     Active Substance: PROPOFOL
     Indication: GENERAL ANAESTHESIA
     Dosage: CA. 14MG/KG
     Route: 042

REACTIONS (5)
  - Coma [None]
  - Procedural intestinal perforation [None]
  - Disseminated intravascular coagulation [None]
  - Haemorrhage [None]
  - Procedural complication [None]
